FAERS Safety Report 20469591 (Version 1)
Quarter: 2022Q1

REPORT INFORMATION
  Report Type: Spontaneous
  Country: US (occurrence: None)
  Receive Date: 20220213
  Receipt Date: 20220213
  Transmission Date: 20220424
  Serious: Yes (Life-Threatening, Hospitalization)
  Sender: FDA-Public Use
  Company Number: None

PATIENT
  Age: 70 Year
  Sex: Male
  Weight: 95 kg

DRUGS (1)
  1. WARFARIN [Suspect]
     Active Substance: WARFARIN
     Indication: Atrial fibrillation
     Dosage: FREQUENCY : DAILY;?
     Route: 048
     Dates: start: 20210208, end: 20211229

REACTIONS (16)
  - Palpitations [None]
  - Presyncope [None]
  - Flank pain [None]
  - Blood pressure decreased [None]
  - Pallor [None]
  - Hyperhidrosis [None]
  - Atrial fibrillation [None]
  - Cardiomyopathy [None]
  - Haemoglobin decreased [None]
  - Haematocrit decreased [None]
  - International normalised ratio increased [None]
  - Haemoperitoneum [None]
  - Hepatic haematoma [None]
  - Hepatic mass [None]
  - Aortic aneurysm [None]
  - Tumour rupture [None]
